FAERS Safety Report 15776710 (Version 2)
Quarter: 2019Q1

REPORT INFORMATION
  Report Type: Spontaneous
  Country: US (occurrence: US)
  Receive Date: 20181231
  Receipt Date: 20190123
  Transmission Date: 20190417
  Serious: No
  Sender: FDA-Public Use
  Company Number: US-PFIZER INC-2018534066

PATIENT
  Age: 17 Year
  Sex: Female

DRUGS (1)
  1. EUCRISA [Suspect]
     Active Substance: CRISABOROLE
     Dosage: UNK, DAILY (APPLY ONE APPLICATION ON THE SKIN)
     Route: 061
     Dates: start: 201811

REACTIONS (2)
  - Application site pain [Unknown]
  - Application site erythema [Unknown]
